FAERS Safety Report 8268604-6 (Version None)
Quarter: 2012Q1

REPORT INFORMATION
  Report Type: 
  Country: None (occurrence: None)
  Receive Date: 20120327
  Receipt Date: 20100322
  Transmission Date: 20120608
  Serious: Yes (Hospitalization, Other)
  Sender: FDA-Public Use
  Company Number: PHHY2010US18466

PATIENT
  Age: 79 Year
  Sex: Male

DRUGS (4)
  1. GLEEVEC [Suspect]
     Indication: GASTROINTESTINAL STROMAL TUMOUR
     Dosage: 400 MG, QD, ORAL
     Route: 048
     Dates: start: 20091101
  2. COMPAZINE [Concomitant]
  3. LASIX [Concomitant]
  4. NEXIUM [Concomitant]

REACTIONS (1)
  - HYPONATRAEMIA [None]
